FAERS Safety Report 10003530 (Version 2)
Quarter: 2014Q2

REPORT INFORMATION
  Report Type: Spontaneous
  Country: US (occurrence: US)
  Receive Date: 20140312
  Receipt Date: 20140603
  Transmission Date: 20141212
  Serious: Yes (Other)
  Sender: FDA-Public Use
  Company Number: PHEH2014US004864

PATIENT
  Age: 24 Year
  Sex: Male
  Weight: 116.1 kg

DRUGS (4)
  1. FANAPT [Suspect]
     Indication: SCHIZOPHRENIA
     Dosage: 6 MG, BID
     Route: 048
     Dates: start: 20140205
  2. COGENTIN [Concomitant]
     Dosage: 2 MG, UNK
     Dates: start: 20140205
  3. COGENTIN [Concomitant]
     Dosage: 1 MG, QD
  4. BUSPIRONE [Concomitant]
     Dosage: 20 MG, UNK

REACTIONS (2)
  - Oedema peripheral [Recovered/Resolved]
  - Gait disturbance [Not Recovered/Not Resolved]
